FAERS Safety Report 5926029-X (Version None)
Quarter: 2008Q3

REPORT INFORMATION
  Report Type: 
  Country: None (occurrence: None)
  Receive Date: 20080924
  Receipt Date: 20080714
  Transmission Date: 20090109
  Serious: No
  Sender: FDA-Public Use
  Company Number: US-WYE-H05066608

PATIENT
  Age: 78 Year
  Sex: Male

DRUGS (1)
  1. TORISEL [Suspect]
     Indication: RENAL CELL CARCINOMA
     Dosage: 25 MG 1X PER 1 WK, INTRAVENOUS
     Route: 042
     Dates: start: 20080501

REACTIONS (7)
  - ANAEMIA [None]
  - DEPRESSION [None]
  - DIARRHOEA [None]
  - DYSURIA [None]
  - FATIGUE [None]
  - NAUSEA [None]
  - STOMACH DISCOMFORT [None]
